FAERS Safety Report 10177115 (Version 2)
Quarter: 2014Q2

REPORT INFORMATION
  Report Type: Spontaneous
  Country: JP (occurrence: JP)
  Receive Date: 20140516
  Receipt Date: 20140529
  Transmission Date: 20141212
  Serious: Yes (Other)
  Sender: FDA-Public Use
  Company Number: JP-PFIZER INC-2014134947

PATIENT
  Age: 79 Year
  Sex: Female

DRUGS (6)
  1. LYRICA [Suspect]
     Dosage: 25 MG, 1X/DAY
     Route: 048
  2. BAYASPIRIN [Concomitant]
  3. NIFEDIPINE CR [Concomitant]
  4. BONOTEO [Concomitant]
  5. EDIROL [Concomitant]
  6. LIVALO [Concomitant]

REACTIONS (2)
  - Haemorrhage [Recovered/Resolved]
  - Diarrhoea [Recovered/Resolved]
